FAERS Safety Report 7540642-8 (Version None)
Quarter: 2011Q2

REPORT INFORMATION
  Report Type: 
  Country: None (occurrence: None)
  Receive Date: 20110610
  Receipt Date: 20110527
  Transmission Date: 20111010
  Serious: Yes (Other)
  Sender: FDA-Public Use
  Company Number: PHHY2011US46000

PATIENT
  Sex: Female

DRUGS (8)
  1. MYFORTIC [Suspect]
     Indication: RENAL TRANSPLANT
     Dosage: 180 MG, BID
  2. METHYLPREDNISOLONE [Suspect]
     Indication: RENAL TRANSPLANT
     Dosage: 4 MG, DAILY
  3. ASPIRIN [Concomitant]
  4. CELLCEPT [Suspect]
     Indication: RENAL TRANSPLANT
  5. NIFEDIPINE [Concomitant]
  6. PROGRAF [Concomitant]
  7. MULTI-VITAMINS [Concomitant]
  8. LABETALOL HCL [Concomitant]

REACTIONS (7)
  - WEIGHT INCREASED [None]
  - FATIGUE [None]
  - MOUTH HAEMORRHAGE [None]
  - URINARY TRACT INFECTION [None]
  - ASTHENIA [None]
  - MOOD SWINGS [None]
  - FEELING ABNORMAL [None]
